FAERS Safety Report 4545816-6 (Version None)
Quarter: 2005Q1

REPORT INFORMATION
  Report Type: 
  Country: None (occurrence: None)
  Receive Date: 20050105
  Receipt Date: 20050105
  Transmission Date: 20050727
  Serious: No
  Sender: FDA-Public Use
  Company Number: None

PATIENT
  Sex: Male
  Weight: 58.0604 kg

DRUGS (2)
  1. VALIUM [Suspect]
     Indication: ANXIETY
     Dosage: 1 Q 6 HRS PO
     Route: 048
  2. VALIUM [Suspect]
     Indication: MUSCLE SPASMS
     Dosage: 1 Q 6 HRS PO
     Route: 048

REACTIONS (1)
  - DRUG INEFFECTIVE [None]
